FAERS Safety Report 8166909-0 (Version None)
Quarter: 2012Q1

REPORT INFORMATION
  Report Type: 
  Country: None (occurrence: None)
  Receive Date: 20120227
  Receipt Date: 20120217
  Transmission Date: 20120608
  Serious: Yes (Hospitalization, Other)
  Sender: FDA-Public Use
  Company Number: US-BAYER-2011-112528

PATIENT
  Age: 25 Year
  Sex: Female
  Weight: 70.295 kg

DRUGS (13)
  1. IRON [Concomitant]
     Dosage: 65 MG, BID
  2. YAZ [Suspect]
     Dosage: UNK
     Dates: start: 20080813, end: 20100601
  3. OMNICEF [Concomitant]
     Dosage: 300 MG, BID
  4. ZOLOFT [Concomitant]
     Indication: PAIN
     Dosage: 25 MG, QD
  5. CLARITIN [Concomitant]
     Dosage: 10 MG, QD
  6. ROBITUSSIN A C [CODEINE PHOSPHATE,GUAIFENESIN,PHENIRAMINE MALEATE] [Concomitant]
     Dosage: UNK UNK, PRN
  7. OMEPRAZOLE [Concomitant]
  8. LORTAB [Concomitant]
     Indication: PAIN
  9. MAXAIR [Concomitant]
     Dosage: 200 MCG
  10. ZOLOFT [Concomitant]
     Dosage: 100 MG, QD
  11. CARAFATE [Concomitant]
  12. URSODIOL [Concomitant]
  13. VITAMINE C [Concomitant]
     Dosage: 1000 MG, BID

REACTIONS (8)
  - VOMITING [None]
  - PANCREATITIS [None]
  - ABDOMINAL PAIN [None]
  - CHOLECYSTITIS ACUTE [None]
  - NAUSEA [None]
  - GALLBLADDER DISORDER [None]
  - INJURY [None]
  - ABDOMINAL PAIN UPPER [None]
